FAERS Safety Report 6052607-6 (Version None)
Quarter: 2009Q1

REPORT INFORMATION
  Report Type: 
  Country: None (occurrence: None)
  Receive Date: 20090127
  Receipt Date: 20090116
  Transmission Date: 20090719
  Serious: Yes (Other)
  Sender: FDA-Public Use
  Company Number: DE-RANBAXY-2009RR-20834

PATIENT
  Age: 15 Month
  Sex: Male
  Weight: 9 kg

DRUGS (2)
  1. IBUPROFEN TABLETS [Suspect]
     Indication: RESPIRATORY TRACT INFECTION
     Dosage: 125 MG, QD
  2. BRONCHIPET SAFT [Concomitant]
     Indication: PYREXIA
     Dosage: 5 ML, TID

REACTIONS (1)
  - RESPIRATORY DEPRESSION [None]
